FAERS Safety Report 8967166 (Version 1)
Quarter: 2012Q4

REPORT INFORMATION
  Report Type: 
  Country: US (occurrence: US)
  Receive Date: 20121217
  Receipt Date: 20121217
  Transmission Date: 20130627
  Serious: Yes (Other)
  Sender: FDA-Public Use
  Company Number: US-JNJFOC-20121201741

PATIENT
  Age: 47 Year
  Sex: Male

DRUGS (1)
  1. RISPERIDONE [Suspect]
     Indication: SCHIZOPHRENIA
     Route: 065

REACTIONS (3)
  - Renal failure acute [Unknown]
  - Mental status changes [Recovering/Resolving]
  - Rhabdomyolysis [Unknown]
